FAERS Safety Report 8431530-3 (Version None)
Quarter: 2012Q2

REPORT INFORMATION
  Report Type: 
  Country: None (occurrence: None)
  Receive Date: 20120607
  Receipt Date: 20120607
  Transmission Date: 20120825
  Serious: Yes (Other)
  Sender: FDA-Public Use
  Company Number: None

PATIENT
  Age: 57 Year
  Sex: Female
  Weight: 89.3586 kg

DRUGS (1)
  1. GEODON [Suspect]
     Indication: SCHIZOPHRENIFORM DISORDER
     Dosage: 1 CAPSULE 20 MG TWICE DAILY MOUTH
     Route: 048
     Dates: start: 20100101, end: 20120101

REACTIONS (2)
  - MEMORY IMPAIRMENT [None]
  - CONFUSIONAL STATE [None]
